FAERS Safety Report 8074069-X (Version None)
Quarter: 2012Q1

REPORT INFORMATION
  Report Type: 
  Country: None (occurrence: None)
  Receive Date: 20120126
  Receipt Date: 20120123
  Transmission Date: 20120608
  Serious: Yes (Hospitalization)
  Sender: FDA-Public Use
  Company Number: US-JNJFOC-20111208189

PATIENT
  Sex: Female
  Weight: 49.9 kg

DRUGS (4)
  1. SIMPONI [Suspect]
     Indication: RHEUMATOID ARTHRITIS
     Route: 058
     Dates: start: 20111101
  2. METHOTREXATE [Concomitant]
     Indication: RHEUMATOID ARTHRITIS
  3. PREDNISONE TAB [Concomitant]
  4. SIMPONI [Suspect]
     Route: 058
     Dates: start: 20080101, end: 20110801

REACTIONS (3)
  - RHEUMATOID ARTHRITIS [None]
  - URINARY TRACT INFECTION [None]
  - DRUG INEFFECTIVE [None]
